FAERS Safety Report 10026909 (Version 3)
Quarter: 2014Q2

REPORT INFORMATION
  Report Type: Report from Study
  Country: US (occurrence: US)
  Receive Date: 20140321
  Receipt Date: 20140523
  Transmission Date: 20141212
  Serious: Yes (Hospitalization, Other)
  Sender: FDA-Public Use
  Company Number: US-JNJFOC-20140306664

PATIENT
  Age: 27 Year
  Sex: Male

DRUGS (4)
  1. INVEGA SUSTENNA [Suspect]
     Indication: SCHIZOPHRENIA, PARANOID TYPE
     Route: 030
     Dates: start: 20140420
  2. INVEGA SUSTENNA [Suspect]
     Indication: SCHIZOPHRENIA, PARANOID TYPE
     Route: 030
     Dates: start: 20140403
  3. INVEGA SUSTENNA [Suspect]
     Indication: SCHIZOPHRENIA, PARANOID TYPE
     Route: 030
     Dates: start: 201311
  4. RISPERIDONE [Concomitant]
     Route: 065

REACTIONS (5)
  - Suicide attempt [Recovered/Resolved]
  - Psychotic disorder [Not Recovered/Not Resolved]
  - Limb injury [Unknown]
  - Adverse event [Recovered/Resolved]
  - Insomnia [Unknown]
